FAERS Safety Report 8144494-7 (Version None)
Quarter: 2012Q1

REPORT INFORMATION
  Report Type: 
  Country: None (occurrence: None)
  Receive Date: 20120217
  Receipt Date: 20120215
  Transmission Date: 20120608
  Serious: No
  Sender: FDA-Public Use
  Company Number: US-BAYER-2012-015768

PATIENT

DRUGS (1)
  1. GADAVIST [Suspect]

REACTIONS (1)
  - URTICARIA [None]
